FAERS Safety Report 20329050 (Version 1)
Quarter: 2022Q1

REPORT INFORMATION
  Report Type: Other
  Country: US (occurrence: None)
  Receive Date: 20220112
  Receipt Date: 20220112
  Transmission Date: 20220423
  Serious: Yes (Hospitalization, Other)
  Sender: FDA-Public Use
  Company Number: US-Neopharma Inc-000693

PATIENT
  Age: 41 Year
  Sex: Male

DRUGS (14)
  1. AMOXICILLIN\CLAVULANATE POTASSIUM [Suspect]
     Active Substance: AMOXICILLIN\CLAVULANATE POTASSIUM
     Indication: Peritonitis
     Dosage: 500 MG TWICE DAILY
     Route: 048
  2. IRBESARTAN [Concomitant]
     Active Substance: IRBESARTAN
     Indication: Product used for unknown indication
  3. NEPHROCAPS [Concomitant]
     Active Substance: ASCORBIC ACID\BIOTIN\CYANOCOBALAMIN\FOLIC ACID\NIACIN\PANTOTHENIC ACID\PYRIDOXINE\RIBOFLAVIN\THIAMIN
     Indication: Product used for unknown indication
  4. PYRIDOXINE [Concomitant]
     Active Substance: PYRIDOXINE
     Indication: Product used for unknown indication
  5. ATORVASTATIN [Concomitant]
     Active Substance: ATORVASTATIN
     Indication: Product used for unknown indication
  6. POLYETHYLENE GLYCOL [Concomitant]
     Active Substance: POLYETHYLENE GLYCOL
     Indication: Product used for unknown indication
  7. METHADONE [Concomitant]
     Active Substance: METHADONE HYDROCHLORIDE
     Indication: Pain
  8. MUPIROCIN [Concomitant]
     Active Substance: MUPIROCIN
     Indication: Product used for unknown indication
  9. VANCOMYCIN [Concomitant]
     Active Substance: VANCOMYCIN
     Indication: Peritonitis
     Dosage: 2 G
     Route: 033
  10. LEVOFLOXACIN [Concomitant]
     Active Substance: LEVOFLOXACIN
     Indication: Peritonitis
     Dosage: 250 MG DAILY
     Route: 033
  11. CLOTRIMAZOLE [Concomitant]
     Active Substance: CLOTRIMAZOLE
     Indication: Peritonitis
     Dosage: CLOTRIMAZOLE TROCHES 3 TIMES A DAY
  12. TOBRAMYCIN [Concomitant]
     Active Substance: TOBRAMYCIN
     Indication: Peritonitis
     Route: 033
  13. LEVOFLOXACIN [Concomitant]
     Active Substance: LEVOFLOXACIN
     Indication: Peritonitis
     Dosage: 500 MG DAILY
     Route: 033
  14. LEVOFLOXACIN [Concomitant]
     Active Substance: LEVOFLOXACIN
     Indication: Peritonitis
     Dosage: 250 MG DAILY
     Route: 048

REACTIONS (3)
  - Peritonitis bacterial [Recovered/Resolved]
  - Disease recurrence [Recovered/Resolved]
  - Drug ineffective [Unknown]
